FAERS Safety Report 15654589 (Version 6)
Quarter: 2020Q1

REPORT INFORMATION
  Report Type: Report from Study
  Country: US (occurrence: US)
  Receive Date: 20181126
  Receipt Date: 20200331
  Transmission Date: 20200409
  Serious: Yes (Death, Life-Threatening, Hospitalization)
  Sender: FDA-Public Use
  Company Number: US-ROCHE-2171022

PATIENT
  Age: 62 Year
  Sex: Male
  Weight: 114.1 kg

DRUGS (23)
  1. AXICABTAGENE CILOLEUCEL [Suspect]
     Active Substance: AXICABTAGENE CILOLEUCEL
     Indication: DIFFUSE LARGE B-CELL LYMPHOMA REFRACTORY
     Route: 042
     Dates: start: 20180731, end: 20180731
  2. GLUCOSE [Concomitant]
     Active Substance: DEXTROSE
  3. ONDANSETRON [Concomitant]
     Active Substance: ONDANSETRON
  4. SILTUXIMAB [Concomitant]
     Active Substance: SILTUXIMAB
  5. ATEZOLIZUMAB. [Suspect]
     Active Substance: ATEZOLIZUMAB
     Indication: DIFFUSE LARGE B-CELL LYMPHOMA REFRACTORY
     Route: 042
     Dates: start: 20180801, end: 20180801
  6. DIPHENHYDRAMINE. [Concomitant]
     Active Substance: DIPHENHYDRAMINE
  7. DOCUSATE [Concomitant]
     Active Substance: DOCUSATE
  8. VALACICLOVIR [Concomitant]
     Active Substance: VALACYCLOVIR HYDROCHLORIDE
  9. FLUDARABINE [Suspect]
     Active Substance: FLUDARABINE PHOSPHATE
     Indication: DIFFUSE LARGE B-CELL LYMPHOMA REFRACTORY
     Route: 042
     Dates: start: 20180726, end: 20180728
  10. MEPRON [Concomitant]
     Active Substance: ATOVAQUONE
  11. LEVETIRACETAM. [Concomitant]
     Active Substance: LEVETIRACETAM
  12. VANCOMYCIN [Concomitant]
     Active Substance: VANCOMYCIN
  13. ALBUMIN HUMAN [Concomitant]
     Active Substance: ALBUMIN HUMAN
  14. CEFEPIME [Concomitant]
     Active Substance: CEFEPIME HYDROCHLORIDE
  15. IBUPROFEN. [Concomitant]
     Active Substance: IBUPROFEN
  16. MYCOSTATIN [Concomitant]
     Active Substance: NYSTATIN
  17. ATEZOLIZUMAB. [Suspect]
     Active Substance: ATEZOLIZUMAB
     Route: 042
     Dates: start: 20180912, end: 20180912
  18. ATEZOLIZUMAB. [Suspect]
     Active Substance: ATEZOLIZUMAB
     Route: 042
     Dates: start: 20180822, end: 20180822
  19. CYCLOPHOSPHAMIDE. [Suspect]
     Active Substance: CYCLOPHOSPHAMIDE
     Indication: DIFFUSE LARGE B-CELL LYMPHOMA REFRACTORY
     Route: 042
     Dates: start: 20180726, end: 20180728
  20. FILGRASTIM [Concomitant]
     Active Substance: FILGRASTIM
  21. PETHIDINE [Concomitant]
     Active Substance: MEPERIDINE
  22. SODIUM CHLORIDE. [Concomitant]
     Active Substance: SODIUM CHLORIDE
  23. ACETAMINOPHEN. [Concomitant]
     Active Substance: ACETAMINOPHEN

REACTIONS (7)
  - Pneumonia staphylococcal [Recovered/Resolved]
  - Seizure [Recovered/Resolved]
  - Urinary tract infection [Recovered/Resolved]
  - Noninfective encephalitis [Fatal]
  - Encephalopathy [Recovered/Resolved]
  - Bacteraemia [Recovered/Resolved]
  - Respiratory failure [Recovered/Resolved]

NARRATIVE: CASE EVENT DATE: 20180805
